FAERS Safety Report 6337330-2 (Version None)
Quarter: 2009Q3

REPORT INFORMATION
  Report Type: 
  Country: None (occurrence: None)
  Receive Date: 20090828
  Receipt Date: 20090828
  Transmission Date: 20100115
  Serious: Yes (Other)
  Sender: FDA-Public Use
  Company Number: None

PATIENT
  Age: 66 Year
  Sex: Male
  Weight: 77.1115 kg

DRUGS (1)
  1. FINASTERIDE [Suspect]
     Indication: PROSTATOMEGALY
     Dosage: 1 EVERY DAY, MONTHS
     Dates: start: 20081108, end: 20090819

REACTIONS (5)
  - MYALGIA [None]
  - NODULE [None]
  - PAINFUL ERECTION [None]
  - PENILE PAIN [None]
  - PENIS DISORDER [None]
